FAERS Safety Report 5845253-8 (Version None)
Quarter: 2008Q3

REPORT INFORMATION
  Report Type: 
  Country: None (occurrence: None)
  Receive Date: 20080814
  Receipt Date: 20080807
  Transmission Date: 20090109
  Serious: Yes (Life-Threatening)
  Sender: FDA-Public Use
  Company Number: D0058325A

PATIENT
  Age: 61 Year
  Sex: Female
  Weight: 60 kg

DRUGS (4)
  1. ZOVIRAX [Suspect]
     Indication: HERPES ZOSTER
     Dosage: 1G PER DAY
     Route: 042
     Dates: start: 20060926
  2. LASIX [Concomitant]
     Dosage: 125MG PER DAY
     Route: 048
  3. AMOXICILLIN AND CLAVULANATE POTASSIUM [Concomitant]
     Dosage: 1000MG TWICE PER DAY
     Route: 048
  4. VALORON [Concomitant]
     Dosage: 100MG THREE TIMES PER DAY
     Route: 048

REACTIONS (7)
  - CONFUSIONAL STATE [None]
  - CONVULSION [None]
  - DEMENTIA [None]
  - DEPRESSION [None]
  - HALLUCINATION [None]
  - SOMNOLENCE [None]
  - STUPOR [None]
